FAERS Safety Report 20913165 (Version 1)
Quarter: 2022Q2

REPORT INFORMATION
  Report Type: Spontaneous
  Country: US (occurrence: US)
  Receive Date: 20220603
  Receipt Date: 20220603
  Transmission Date: 20220721
  Serious: No
  Sender: FDA-Public Use
  Company Number: US-BRAINTREE LABORATORIES, INC.-2022BTE00108

PATIENT
  Age: 47 Year
  Sex: Female
  Weight: 67.574 kg

DRUGS (4)
  1. SUTAB [Suspect]
     Active Substance: MAGNESIUM SULFATE\POTASSIUM CHLORIDE\SODIUM SULFATE
     Dosage: 1 X 12 TABLETS, 1X
     Dates: start: 20220215, end: 20220215
  2. OMEPRAZOLE [Concomitant]
     Active Substance: OMEPRAZOLE
  3. METOPROLOL [Concomitant]
     Active Substance: METOPROLOL
  4. FIORICET [Concomitant]
     Active Substance: ACETAMINOPHEN\BUTALBITAL\CAFFEINE

REACTIONS (1)
  - Urticaria [Recovered/Resolved]

NARRATIVE: CASE EVENT DATE: 20220215
